FAERS Safety Report 11769794 (Version 4)
Quarter: 2018Q2

REPORT INFORMATION
  Report Type: Spontaneous
  Country: US (occurrence: US)
  Receive Date: 20151123
  Receipt Date: 20180403
  Transmission Date: 20180711
  Serious: Yes (Hospitalization, Other)
  Sender: FDA-Public Use
  Company Number: US-SA-2015SA183729

PATIENT
  Age: 73 Year
  Sex: Female

DRUGS (5)
  1. CORTISONE [Concomitant]
     Active Substance: CORTISONE\HYDROCORTISONE
     Route: 065
  2. LANTUS SOLOSTAR [Suspect]
     Active Substance: INSULIN GLARGINE
     Indication: TYPE 2 DIABETES MELLITUS
     Dosage: DOSE:28 UNIT(S)
     Route: 051
  3. SOLOSTAR [Suspect]
     Active Substance: DEVICE
     Indication: TYPE 2 DIABETES MELLITUS
  4. LANTUS SOLOSTAR [Suspect]
     Active Substance: INSULIN GLARGINE
     Indication: TYPE 2 DIABETES MELLITUS
     Dosage: DOSE:58 UNIT(S)
     Route: 058
  5. SOLOSTAR [Suspect]
     Active Substance: DEVICE
     Indication: TYPE 2 DIABETES MELLITUS

REACTIONS (25)
  - Insomnia [Unknown]
  - Memory impairment [Unknown]
  - Dysphonia [Unknown]
  - Dermatitis [Not Recovered/Not Resolved]
  - Arthropathy [Recovered/Resolved]
  - Arthritis [Unknown]
  - Anxiety [Unknown]
  - Fall [Recovered/Resolved]
  - Pain in extremity [Not Recovered/Not Resolved]
  - Hyperglycaemia [Unknown]
  - Chronic kidney disease [Not Recovered/Not Resolved]
  - Viral infection [Unknown]
  - Pain [Recovered/Resolved]
  - Dupuytren^s contracture [Unknown]
  - Intracranial aneurysm [Recovered/Resolved]
  - Spinal disorder [Unknown]
  - Carpal tunnel syndrome [Unknown]
  - Musculoskeletal pain [Recovered/Resolved]
  - Muscle strain [Recovered/Resolved]
  - Arthropathy [Unknown]
  - Cough [Unknown]
  - Alopecia [Not Recovered/Not Resolved]
  - Syncope [Unknown]
  - Condition aggravated [Unknown]
  - Depression [Unknown]

NARRATIVE: CASE EVENT DATE: 2005
